FAERS Safety Report 5568416-8 (Version None)
Quarter: 2007Q4

REPORT INFORMATION
  Report Type: 
  Country: None (occurrence: None)
  Receive Date: 20071220
  Receipt Date: 20071212
  Transmission Date: 20080405
  Serious: Yes (Other)
  Sender: FDA-Public Use
  Company Number: GB-AVENTIS-200721469GDDC

PATIENT
  Sex: Female

DRUGS (2)
  1. METRONIDAZOLE HCL [Suspect]
     Dosage: DOSE: UNK
  2. FEMARA [Suspect]

REACTIONS (2)
  - LUNG DISORDER [None]
  - PULMONARY FIBROSIS [None]
